FAERS Safety Report 14155188 (Version 6)
Quarter: 2021Q2

REPORT INFORMATION
  Report Type: Report from Study
  Country: DE (occurrence: DE)
  Receive Date: 20171103
  Receipt Date: 20210430
  Transmission Date: 20210716
  Serious: Yes (Hospitalization)
  Sender: FDA-Public Use
  Company Number: DE-EISAI MEDICAL RESEARCH-EC-2017-032693

PATIENT
  Age: 53 Year
  Sex: Female
  Weight: 59.5 kg

DRUGS (5)
  1. ERIBULIN [Suspect]
     Active Substance: ERIBULIN
     Indication: BREAST CANCER
     Route: 041
     Dates: start: 20170621, end: 20171011
  2. IBUPROFEN. [Concomitant]
     Active Substance: IBUPROFEN
     Indication: PLEURAL EFFUSION
     Dosage: UNKNOWN FREQUENCY
     Route: 048
     Dates: start: 20171104
  3. PANTOPRAZOLE [Concomitant]
     Active Substance: PANTOPRAZOLE
     Indication: PROPHYLAXIS
     Dosage: UNKNOWN FREQUENCY
     Route: 048
     Dates: start: 20171104
  4. BALDRIN [Concomitant]
     Indication: SLEEP DISORDER
     Dosage: UNKNOWN DOSE AND FREQUENCY
     Route: 048
  5. GRANISETRON [Concomitant]
     Active Substance: GRANISETRON
     Indication: NAUSEA
     Dosage: UNKNOWN FREQUENCY
     Route: 048
     Dates: start: 20170810

REACTIONS (2)
  - Pericardial effusion [Recovered/Resolved]
  - Pleural effusion [Recovered/Resolved]

NARRATIVE: CASE EVENT DATE: 20171030
